FAERS Safety Report 6390551-5 (Version None)
Quarter: 2009Q4

REPORT INFORMATION
  Report Type: 
  Country: None (occurrence: None)
  Receive Date: 20091005
  Receipt Date: 20091005
  Transmission Date: 20100525
  Serious: Yes (Hospitalization)
  Sender: FDA-Public Use
  Company Number: None

PATIENT
  Sex: Male
  Weight: 72 kg

DRUGS (9)
  1. SORAFENIB (BAY 43-9006 BAYER HEALTHCARE PHARMACEUTICALS [Suspect]
     Indication: CHRONIC MYELOMONOCYTIC LEUKAEMIA
     Dosage: 400 MG BID PO
     Route: 048
     Dates: start: 20090318, end: 20090407
  2. SORAFENIB (BAY 43-9006 BAYER HEALTHCARE PHARMACEUTICALS [Suspect]
     Indication: MYELODYSPLASTIC SYNDROME
     Dosage: 400 MG BID PO
     Route: 048
     Dates: start: 20090318, end: 20090407
  3. ASPIRIN [Concomitant]
  4. PRAVASTATIN [Concomitant]
  5. PLAVIX [Concomitant]
  6. LISINOPRIL [Concomitant]
  7. PANTOPRAZOLE SODIUM [Concomitant]
  8. CELEXA [Concomitant]
  9. METOPROLOL TARTRATE [Concomitant]

REACTIONS (4)
  - ATRIAL FIBRILLATION [None]
  - CHEST DISCOMFORT [None]
  - DYSPNOEA [None]
  - MUSCLE TIGHTNESS [None]
